FAERS Safety Report 16766854 (Version 1)
Quarter: 2019Q4

REPORT INFORMATION
  Report Type: Spontaneous
  Country: AU (occurrence: AU)
  Receive Date: 20190902
  Receipt Date: 20190902
  Transmission Date: 20200122
  Serious: Yes (Life-Threatening, Disabling)
  Sender: FDA-Public Use
  Company Number: None

PATIENT
  Age: 10 Year
  Sex: Male
  Weight: 41 kg

DRUGS (2)
  1. MONTELUKAST [Suspect]
     Active Substance: MONTELUKAST SODIUM
     Indication: ASTHMA
     Route: 048
     Dates: start: 20130930, end: 20150930
  2. RESPIKAST 10 (MONTELUKAST (QA)) [Suspect]
     Active Substance: MONTELUKAST SODIUM

REACTIONS (9)
  - Enuresis [None]
  - Sleep terror [None]
  - Panic attack [None]
  - Drug withdrawal syndrome [None]
  - Tic [None]
  - Night sweats [None]
  - Anxiety [None]
  - Suicidal ideation [None]
  - Therapy change [None]
